FAERS Safety Report 4506476-3 (Version None)
Quarter: 2004Q4

REPORT INFORMATION
  Report Type: 
  Country: None (occurrence: None)
  Receive Date: 20041122
  Receipt Date: 20041022
  Transmission Date: 20050328
  Serious: Yes (Hospitalization)
  Sender: FDA-Public Use
  Company Number: SE-BRISTOL-MYERS SQUIBB COMPANY-12740213

PATIENT
  Age: 82 Year
  Sex: Female

DRUGS (10)
  1. DICLOCIL CAPS 500 MG [Suspect]
     Indication: HAEMATOMA INFECTION
     Route: 048
     Dates: start: 20040513, end: 20040805
  2. FUCIDINE CAP [Suspect]
     Indication: HAEMATOMA INFECTION
     Route: 048
     Dates: start: 20040513, end: 20040805
  3. LASIX [Concomitant]
     Route: 048
  4. PULMICORT [Concomitant]
     Route: 055
  5. OMEPRAZOLE [Concomitant]
     Route: 048
  6. CITALOPRAM [Concomitant]
     Route: 048
  7. KAJOS [Concomitant]
     Route: 048
  8. PRIMPERAN INJ [Concomitant]
     Route: 054
  9. LAKTULOS PHARMACIA [Concomitant]
     Dosage: 670 MG/ML
     Route: 048
  10. MIANSERIN [Concomitant]
     Route: 048

REACTIONS (7)
  - ANAEMIA [None]
  - FEELING ABNORMAL [None]
  - INFLAMMATION [None]
  - LOSS OF CONSCIOUSNESS [None]
  - PALLOR [None]
  - RENAL FAILURE [None]
  - VOMITING [None]
